FAERS Safety Report 6933161-0 (Version None)
Quarter: 2010Q3

REPORT INFORMATION
  Report Type: 
  Country: None (occurrence: None)
  Receive Date: 20100820
  Receipt Date: 20100812
  Transmission Date: 20110219
  Serious: Yes (Hospitalization)
  Sender: FDA-Public Use
  Company Number: US-BIOGENIDEC-2009BI011849

PATIENT
  Age: 61 Year
  Sex: Male
  Weight: 47 kg

DRUGS (3)
  1. AVONEX [Suspect]
     Indication: MULTIPLE SCLEROSIS
     Route: 030
     Dates: start: 19960101, end: 20030101
  2. AVONEX [Suspect]
     Route: 030
     Dates: start: 20030101
  3. SULFA MEDICATION (NOS) [Concomitant]

REACTIONS (15)
  - COUGH [None]
  - DECUBITUS ULCER [None]
  - DEHYDRATION [None]
  - DEVICE DISLOCATION [None]
  - DRUG HYPERSENSITIVITY [None]
  - FLUID INTAKE REDUCED [None]
  - HYPOAESTHESIA [None]
  - MOBILITY DECREASED [None]
  - MUSCLE SPASMS [None]
  - MUSCLE SPASTICITY [None]
  - MUSCULOSKELETAL STIFFNESS [None]
  - PAIN IN EXTREMITY [None]
  - SPUTUM ABNORMAL [None]
  - SPUTUM DISCOLOURED [None]
  - URINARY TRACT INFECTION [None]
